FAERS Safety Report 6221534-3 (Version None)
Quarter: 2009Q2

REPORT INFORMATION
  Report Type: 
  Country: None (occurrence: None)
  Receive Date: 20090610
  Receipt Date: 20090608
  Transmission Date: 20091009
  Serious: Yes (Hospitalization)
  Sender: FDA-Public Use
  Company Number: PHEH2009US04271

PATIENT
  Sex: Female
  Weight: 72.109 kg

DRUGS (3)
  1. TEGRETOL [Suspect]
     Dosage: 200 MG, 2 TABS 3 TIMES DAILY
     Route: 048
  2. ISONIAZID [Interacting]
     Indication: TUBERCULIN TEST POSITIVE
     Dosage: 300 MG, QD
     Route: 048
     Dates: start: 20090416, end: 20090422
  3. VITAMIN B6 [Concomitant]
     Indication: TUBERCULIN TEST POSITIVE
     Dosage: 1 DF, QD
     Route: 048
     Dates: start: 20090416, end: 20090422

REACTIONS (9)
  - ABASIA [None]
  - ALANINE AMINOTRANSFERASE INCREASED [None]
  - ASPARTATE AMINOTRANSFERASE INCREASED [None]
  - BLOOD ALKALINE PHOSPHATASE INCREASED [None]
  - CHEST X-RAY ABNORMAL [None]
  - DRUG LEVEL INCREASED [None]
  - LOSS OF CONSCIOUSNESS [None]
  - SYNCOPE [None]
  - TUBERCULIN TEST POSITIVE [None]
